FAERS Safety Report 9162684 (Version 1)
Quarter: 2013Q1

REPORT INFORMATION
  Report Type: Spontaneous
  Country: US (occurrence: None)
  Receive Date: 20130206
  Receipt Date: 20130206
  Transmission Date: 20140127
  Serious: Yes (Hospitalization)
  Sender: FDA-Public Use
  Company Number: AUR-APL-01123

PATIENT
  Age: 67 Year
  Sex: Female

DRUGS (3)
  1. SIMVASTATIN (SIMVASTATIN) [Suspect]
     Indication: PRODUCT USED FOR UNKNOWN INDICATION
     Route: 048
  2. DOCETAXEL (DOCETAXEL) [Suspect]
     Indication: BREAST CANCER STAGE II
     Route: 042
  3. CYCLOPHOSPHAMIDE (CYCLOPHOSPHAMIDE) [Concomitant]

REACTIONS (8)
  - Atrial fibrillation [None]
  - Tachycardia [None]
  - Palpitations [None]
  - Dyspnoea [None]
  - Tremor [None]
  - Chest discomfort [None]
  - Drug interaction [None]
  - Breast cancer stage II [None]
